FAERS Safety Report 19547719 (Version 1)
Quarter: 2021Q3

REPORT INFORMATION
  Report Type: Spontaneous
  Country: IN (occurrence: IN)
  Receive Date: 20210714
  Receipt Date: 20210714
  Transmission Date: 20211014
  Serious: No
  Sender: FDA-Public Use
  Company Number: IN-LUPIN LIMITED-2021-11673

PATIENT
  Age: 23 Year
  Sex: Female

DRUGS (2)
  1. MOXIFLOXACIN. [Suspect]
     Active Substance: MOXIFLOXACIN
     Indication: TUBERCULOSIS
     Dosage: UNK, 500MCG PER 0.1ML ONCE WEEKLY; RECEIVED THREE SUCH DOSES, INJECTION
  2. BEVACIZUMAB. [Suspect]
     Active Substance: BEVACIZUMAB
     Indication: TUBERCULOSIS
     Dosage: 1.25MG PER 0.05ML ONCE WEEKLY; RECEIVED THREE SUCH DOSES

REACTIONS (1)
  - Off label use [Unknown]
